FAERS Safety Report 4627951-7 (Version None)
Quarter: 2005Q2

REPORT INFORMATION
  Report Type: 
  Country: None (occurrence: None)
  Receive Date: 20050404
  Receipt Date: 20050404
  Transmission Date: 20051028
  Serious: Yes (Hospitalization)
  Sender: FDA-Public Use
  Company Number: None

PATIENT
  Age: 59 Year
  Sex: Female
  Weight: 54.4316 kg

DRUGS (1)
  1. TAXOL [Suspect]
     Indication: BREAST CANCER METASTATIC
     Dosage: 153MG   Q3WK/1WK OFF   INTRAVENOU
     Route: 042
     Dates: start: 20031125, end: 20050301

REACTIONS (3)
  - ASTHENIA [None]
  - FATIGUE [None]
  - PO2 [None]
